FAERS Safety Report 4332492-0 (Version None)
Quarter: 2004Q2

REPORT INFORMATION
  Report Type: 
  Country: None (occurrence: None)
  Receive Date: 20040401
  Receipt Date: 20040315
  Transmission Date: 20050107
  Serious: Yes (Hospitalization)
  Sender: FDA-Public Use
  Company Number: DSA_24046_2004

PATIENT
  Age: 92 Year
  Sex: Female

DRUGS (13)
  1. LORAZEPAM [Suspect]
     Dosage: 1 MD TID PO
     Route: 048
     Dates: end: 20031102
  2. LORAZEPAM [Suspect]
     Dosage: 1 MG QD PO
     Route: 048
     Dates: start: 20031103, end: 20031119
  3. COLCHICINE [Suspect]
     Indication: GOUT
     Dosage: 1 MG QD PO
     Route: 048
     Dates: end: 20031102
  4. ZOLPIDEM TARTRATE [Suspect]
     Dosage: 10 MG BID PO
     Route: 048
     Dates: end: 20031119
  5. ZOLPIDEM TARTRATE [Suspect]
     Dosage: 10 MG QD PO
     Route: 048
     Dates: start: 20031120
  6. TIMOPTOL /FRA/ [Suspect]
     Dates: end: 20031102
  7. GLUCOPHAGE [Concomitant]
  8. LEVOTHYROXINE SODIUM [Concomitant]
  9. LASIX [Concomitant]
  10. ACETAMINOPHEN [Concomitant]
  11. CATACOL [Concomitant]
  12. PREVISCAN [Concomitant]
  13. CIFLOX [Concomitant]

REACTIONS (3)
  - ABNORMAL BEHAVIOUR [None]
  - APATHY [None]
  - PSYCHOMOTOR SKILLS IMPAIRED [None]
